FAERS Safety Report 8689470 (Version 2)
Quarter: 2013Q4

REPORT INFORMATION
  Report Type: Spontaneous
  Country: US (occurrence: US)
  Receive Date: 20120727
  Receipt Date: 20131030
  Transmission Date: 20140711
  Serious: No
  Sender: FDA-Public Use
  Company Number: US-009507513-1207USA010232

PATIENT
  Sex: Female

DRUGS (5)
  1. JANUVIA [Suspect]
     Dosage: 100 MG, QD
     Route: 048
  2. LYRICA [Suspect]
     Dosage: 75 MG, PRN
  3. HUMALOG [Suspect]
     Dosage: 30 IU, TID
  4. METFORMIN HYDROCHLORIDE [Suspect]
     Dosage: 1000 MG, BID
  5. LANTUS [Suspect]
     Dosage: 52 IU, BID

REACTIONS (3)
  - Musculoskeletal pain [Unknown]
  - Drug ineffective [Unknown]
  - Musculoskeletal pain [Unknown]
